FAERS Safety Report 12909065 (Version 1)
Quarter: 2016Q4

REPORT INFORMATION
  Report Type: Spontaneous
  Country: US (occurrence: US)
  Receive Date: 20161103
  Receipt Date: 20161103
  Transmission Date: 20170207
  Serious: No
  Sender: FDA-Public Use
  Company Number: US-JAZZ-2016-US-016994

PATIENT
  Age: 55 Year
  Sex: Male

DRUGS (28)
  1. COENZYME Q10 [Concomitant]
     Active Substance: UBIDECARENONE
  2. LOPERAMIDE HCL [Concomitant]
     Active Substance: LOPERAMIDE HYDROCHLORIDE
  3. NAPROXEN. [Concomitant]
     Active Substance: NAPROXEN
  4. CALCIUM + D3 [Concomitant]
     Active Substance: CALCIUM\CHOLECALCIFEROL
  5. FIBER [Concomitant]
     Active Substance: PSYLLIUM HUSK
  6. FLORIFY [Concomitant]
  7. CAFFEINE. [Concomitant]
     Active Substance: CAFFEINE
  8. LIDOCAINE. [Concomitant]
     Active Substance: LIDOCAINE
  9. MECLIZINE HCL [Concomitant]
     Active Substance: MECLIZINE HYDROCHLORIDE
  10. MELATONIN [Concomitant]
     Active Substance: MELATONIN
  11. XYREM [Suspect]
     Active Substance: SODIUM OXYBATE
     Indication: NARCOLEPSY
     Dosage: 2.25 G, BID
     Route: 048
     Dates: start: 201608, end: 2016
  12. PERCOCET [Concomitant]
     Active Substance: ACETAMINOPHEN\OXYCODONE HYDROCHLORIDE
  13. FLUTICASONE PROPIONATE. [Concomitant]
     Active Substance: FLUTICASONE PROPIONATE
  14. REPLENEX [Concomitant]
  15. VITALITY COLDWATER OMEGA-3 [Concomitant]
  16. TRIAMTERENE AND HYDROCHLOROTHIAZIDE [Concomitant]
     Active Substance: HYDROCHLOROTHIAZIDE\TRIAMTERENE
  17. CETIRIZINE HCL [Concomitant]
     Active Substance: CETIRIZINE HYDROCHLORIDE
  18. PROAIR HFA [Concomitant]
     Active Substance: ALBUTEROL SULFATE
  19. ANALPRAM-HC [Concomitant]
  20. PHYTOMEGA [Concomitant]
  21. RECOVER [Concomitant]
  22. NEOSPORIN [Concomitant]
     Active Substance: BACITRACIN ZINC\NEOMYCIN SULFATE\POLYMYXIN B SULFATE
  23. MULTIVITAMINS [Concomitant]
     Active Substance: VITAMINS
  24. PROVEXCV [Concomitant]
  25. HYDROCORTISONE. [Concomitant]
     Active Substance: HYDROCORTISONE
  26. RITALIN [Concomitant]
     Active Substance: METHYLPHENIDATE HYDROCHLORIDE
  27. BISACODYL. [Concomitant]
     Active Substance: BISACODYL
  28. CYCLOBENZAPRINE [Concomitant]
     Active Substance: CYCLOBENZAPRINE

REACTIONS (6)
  - Feeling hot [Unknown]
  - Unevaluable event [Unknown]
  - Fatigue [Unknown]
  - Abdominal pain upper [Unknown]
  - Hypokinesia [Unknown]
  - Confusional state [Unknown]

NARRATIVE: CASE EVENT DATE: 201608
